FAERS Safety Report 4898083-8 (Version None)
Quarter: 2006Q1

REPORT INFORMATION
  Report Type: 
  Country: None (occurrence: None)
  Receive Date: 20060130
  Receipt Date: 20060119
  Transmission Date: 20060701
  Serious: Yes (Other)
  Sender: FDA-Public Use
  Company Number: 2006US000129

PATIENT
  Age: 26 Year
  Sex: Male

DRUGS (2)
  1. PROTOPIC [Suspect]
     Indication: SKIN DISORDER
     Dosage: TOPICAL
     Route: 061
     Dates: start: 20030101
  2. ELIDEL (PIMECROLIMUS, PIMECROLIMUS) [Suspect]
     Indication: SKIN DISORDER
     Dosage: TOPICAL
     Route: 061
     Dates: start: 20030101

REACTIONS (1)
  - T-CELL LYMPHOMA [None]
